FAERS Safety Report 9413209 (Version 1)
Quarter: 2013Q3

REPORT INFORMATION
  Report Type: Spontaneous
  Country: US (occurrence: US)
  Receive Date: 20130722
  Receipt Date: 20130722
  Transmission Date: 20140515
  Serious: No
  Sender: FDA-Public Use
  Company Number: US-MYLANLABS-2013S1014081

PATIENT
  Age: 33 Year
  Sex: Female

DRUGS (1)
  1. RIZATRIPTAN BENZOATE TABLETS [Suspect]
     Indication: MIGRAINE
     Route: 048
     Dates: start: 20130606

REACTIONS (2)
  - Drug ineffective [Not Recovered/Not Resolved]
  - Migraine [Not Recovered/Not Resolved]
